FAERS Safety Report 16963824 (Version 2)
Quarter: 2019Q4

REPORT INFORMATION
  Report Type: Spontaneous
  Country: JP (occurrence: JP)
  Receive Date: 20191026
  Receipt Date: 20191107
  Transmission Date: 20200122
  Serious: Yes (Death, Hospitalization, Other)
  Sender: FDA-Public Use
  Company Number: JP-AMGEN-JPNSP2019177631

PATIENT
  Age: 71 Year
  Sex: Male
  Weight: 64 kg

DRUGS (2)
  1. IRINOTECAN HYDROCHLORIDE. [Suspect]
     Active Substance: IRINOTECAN HYDROCHLORIDE
     Indication: COLON CANCER
     Dosage: UNK
     Route: 050
     Dates: start: 201607, end: 201703
  2. VECTIBIX [Suspect]
     Active Substance: PANITUMUMAB
     Indication: COLON CANCER
     Dosage: UNK
     Route: 065
     Dates: start: 201607, end: 201703

REACTIONS (6)
  - Dermatitis [Unknown]
  - Death [Fatal]
  - Central nervous system vasculitis [Unknown]
  - Photosensitivity reaction [Unknown]
  - Pneumonia aspiration [Unknown]
  - Shock [Unknown]

NARRATIVE: CASE EVENT DATE: 2017
